FAERS Safety Report 5584982-0 (Version None)
Quarter: 2007Q4

REPORT INFORMATION
  Report Type: 
  Country: None (occurrence: None)
  Receive Date: 20071130
  Receipt Date: 20070516
  Transmission Date: 20080405
  Serious: Yes (Hospitalization)
  Sender: FDA-Public Use
  Company Number: WAES 0705USA03033

PATIENT
  Age: 77 Year
  Sex: Female

DRUGS (1)
  1. FOSAMAX [Suspect]
     Dosage: TABLET/WKY/PO
     Route: 048

REACTIONS (3)
  - FOREIGN BODY TRAUMA [None]
  - GASTRITIS [None]
  - OESOPHAGEAL ULCER [None]
